FAERS Safety Report 8605322-6 (Version None)
Quarter: 2012Q3

REPORT INFORMATION
  Report Type: 
  Country: None (occurrence: None)
  Receive Date: 20120820
  Receipt Date: 20120809
  Transmission Date: 20120928
  Serious: No
  Sender: FDA-Public Use
  Company Number: US-BAYER-2012-082086

PATIENT
  Sex: Female

DRUGS (2)
  1. ALEVE (CAPLET) [Suspect]
     Indication: MUSCLE SPASMS
  2. ALEVE (CAPLET) [Suspect]
     Indication: BACK PAIN
     Dosage: 5 DF, UNK
     Route: 048

REACTIONS (1)
  - BACK PAIN [None]
